FAERS Safety Report 12946533 (Version 6)
Quarter: 2017Q2

REPORT INFORMATION
  Report Type: Report from Study
  Country: AU (occurrence: AU)
  Receive Date: 20161116
  Receipt Date: 20170509
  Transmission Date: 20170830
  Serious: Yes (Other)
  Sender: FDA-Public Use
  Company Number: PHHY2014AU101345

PATIENT
  Age: 41 Year
  Sex: Female

DRUGS (2)
  1. STI 571 [Suspect]
     Active Substance: IMATINIB
     Indication: DESMOID TUMOUR
     Dosage: 400 MG, QD
     Route: 048
     Dates: start: 2014, end: 20170130
  2. DOXORUBICIN [Suspect]
     Active Substance: DOXORUBICIN
     Indication: PRODUCT USED FOR UNKNOWN INDICATION
     Route: 065

REACTIONS (4)
  - Ureteric obstruction [Unknown]
  - Cystitis noninfective [Not Recovered/Not Resolved]
  - Product use in unapproved indication [Unknown]
  - Haematuria [Not Recovered/Not Resolved]

NARRATIVE: CASE EVENT DATE: 2014
